FAERS Safety Report 5046204-9 (Version None)
Quarter: 2006Q2

REPORT INFORMATION
  Report Type: 
  Country: None (occurrence: None)
  Receive Date: 20060629
  Receipt Date: 20060616
  Transmission Date: 20061013
  Serious: Yes (Hospitalization, Disabling, Other)
  Sender: FDA-Public Use
  Company Number: 2006058174

PATIENT
  Age: 60 Year
  Sex: Female
  Weight: 86.1834 kg

DRUGS (8)
  1. DEPO-MEDROL [Suspect]
     Indication: NERVE BLOCK
     Dosage: 2 IN 1 D
     Dates: start: 20060210, end: 20060210
  2. DEPO-MEDROL [Suspect]
     Indication: PAIN IN EXTREMITY
     Dosage: 2 IN 1 D
     Dates: start: 20060210, end: 20060210
  3. LYRICA [Suspect]
     Indication: HYPOAESTHESIA
     Dosage: 150 MG (75 MG, 2 IN 1 D)
     Dates: start: 20060101
  4. LYRICA [Suspect]
     Indication: PAIN
     Dosage: 150 MG (75 MG, 2 IN 1 D)
     Dates: start: 20060101
  5. LISINOPRIL [Concomitant]
  6. METOPROLOL (METOPROLOL) [Concomitant]
  7. PLAVIX [Concomitant]
  8. ASPIRIN [Concomitant]

REACTIONS (13)
  - ASTHENIA [None]
  - BALANCE DISORDER [None]
  - BURNING SENSATION [None]
  - CEREBROVASCULAR ACCIDENT [None]
  - DYSAESTHESIA [None]
  - FAECAL INCONTINENCE [None]
  - HYPOAESTHESIA [None]
  - OEDEMA PERIPHERAL [None]
  - PARALYSIS [None]
  - SPINAL CORD HERNIATION [None]
  - URINARY INCONTINENCE [None]
  - WALKING AID USER [None]
  - WHEELCHAIR USER [None]
